FAERS Safety Report 6816708-4 (Version None)
Quarter: 2010Q3

REPORT INFORMATION
  Report Type: 
  Country: None (occurrence: None)
  Receive Date: 20100706
  Receipt Date: 20100623
  Transmission Date: 20110219
  Serious: No
  Sender: FDA-Public Use
  Company Number: US-JNJFOC-20100607227

PATIENT
  Sex: Male
  Weight: 113.4 kg

DRUGS (22)
  1. FENTANYL [Suspect]
     Indication: PRODUCT USED FOR UNKNOWN INDICATION
     Route: 062
  2. FENTANYL [Suspect]
     Route: 062
  3. FENTANYL [Suspect]
     Indication: PAIN
     Route: 062
  4. FENTANYL [Suspect]
     Route: 062
  5. DOXAZOSIN MESYLATE [Concomitant]
     Indication: BLOOD PRESSURE
     Dosage: DAILY
     Route: 048
  6. DOXAZOSIN MESYLATE [Concomitant]
     Indication: PROSTATIC DISORDER
     Dosage: DAILY
     Route: 048
  7. BUPROPION HCL [Concomitant]
     Indication: DEPRESSION
     Dosage: TWICE DAILY
     Route: 048
  8. GABAPENTIN [Concomitant]
     Indication: SPONDYLITIS
     Dosage: TWICE DAILY AS NEEDED
     Route: 048
  9. FERROUS GLUCONATE [Concomitant]
     Indication: BLOOD IRON
     Dosage: DAILY
     Route: 048
     Dates: start: 20100101
  10. METOPROLOL TARTRATE [Concomitant]
     Indication: BLOOD PRESSURE
     Dosage: TWICE DAILY
     Route: 048
  11. POTASSIUM [Concomitant]
     Indication: MINERAL SUPPLEMENTATION
     Dosage: 2 TWICE DAILY
     Route: 048
  12. ASPIRIN [Concomitant]
     Indication: CARDIAC DISORDER
     Dosage: DAILY
     Route: 048
  13. MUCINEX [Concomitant]
     Indication: DRY MOUTH
     Dosage: DAILY
     Route: 048
  14. DIGOXIN [Concomitant]
     Indication: CARDIAC DISORDER
     Dosage: DAILY
     Route: 048
  15. PLAVIX [Concomitant]
     Indication: CARDIOVASCULAR DISORDER
     Dosage: DAILY
     Route: 048
  16. PLAVIX [Concomitant]
     Indication: CARDIAC DISORDER
     Dosage: DAILY
     Route: 048
  17. DOCUSATE [Concomitant]
     Indication: FAECES HARD
     Route: 048
  18. LOVASTATIN [Concomitant]
     Indication: BLOOD CHOLESTEROL
     Dosage: DAILY
     Route: 048
  19. NIACIN [Concomitant]
     Indication: BLOOD CHOLESTEROL
     Dosage: DAILY
     Route: 048
  20. FUROSEMIDE [Concomitant]
     Indication: DIURETIC THERAPY
     Dosage: DAILY
     Route: 048
  21. ISOSORBIDE (UNSPECIFIED) [Concomitant]
     Indication: CHEST PAIN
     Dosage: DAILY
     Route: 048
  22. METFORMIN HCL [Concomitant]
     Indication: BLOOD GLUCOSE ABNORMAL
     Dosage: 2 TWICE DAILY
     Route: 048

REACTIONS (3)
  - DRUG DISPENSING ERROR [None]
  - EXPIRED DRUG ADMINISTERED [None]
  - WRONG TECHNIQUE IN DRUG USAGE PROCESS [None]
